FAERS Safety Report 6587321-1 (Version None)
Quarter: 2010Q1

REPORT INFORMATION
  Report Type: 
  Country: None (occurrence: None)
  Receive Date: 20100217
  Receipt Date: 20090514
  Transmission Date: 20100710
  Serious: No
  Sender: FDA-Public Use
  Company Number: US-ALLERGAN-0906610US

PATIENT
  Age: 7 Year
  Sex: Female
  Weight: 22.676 kg

DRUGS (1)
  1. BOTOX [Suspect]
     Indication: MUSCLE SPASTICITY
     Dosage: 200 UNITS, SINGLE
     Route: 030
     Dates: start: 20090219, end: 20090219

REACTIONS (2)
  - PYREXIA [None]
  - VOMITING [None]
